FAERS Safety Report 23926006 (Version 1)
Quarter: 2024Q2

REPORT INFORMATION
  Report Type: Spontaneous
  Country: US (occurrence: US)
  Receive Date: 20240531
  Receipt Date: 20240531
  Transmission Date: 20240716
  Serious: No
  Sender: FDA-Public Use
  Company Number: US-INSUD PHARMA-2405US04107

PATIENT

DRUGS (2)
  1. TESTOSTERONE [Suspect]
     Active Substance: TESTOSTERONE
     Indication: Androgen deficiency
     Dosage: FOUR PUMPS A DAY
     Route: 061
  2. TESTOSTERONE [Suspect]
     Active Substance: TESTOSTERONE
     Dosage: FOUR PUMPS A DAY
     Route: 061

REACTIONS (2)
  - Drug ineffective [Not Recovered/Not Resolved]
  - Erectile dysfunction [Not Recovered/Not Resolved]

NARRATIVE: CASE EVENT DATE: 20240301
